FAERS Safety Report 10726370 (Version 4)
Quarter: 2015Q2

REPORT INFORMATION
  Report Type: Spontaneous
  Country: US (occurrence: US)
  Receive Date: 20150121
  Receipt Date: 20150506
  Transmission Date: 20150821
  Serious: Yes (Other)
  Sender: FDA-Public Use
  Company Number: US-PFIZER INC-2015019434

PATIENT
  Age: 34 Year
  Sex: Male
  Weight: 79 kg

DRUGS (7)
  1. NEURONTIN [Concomitant]
     Active Substance: GABAPENTIN
     Dosage: 150 MG, Q12
     Dates: start: 20150105
  2. DECADRON [Concomitant]
     Active Substance: DEXAMETHASONE
     Dosage: 4 MG, Q6 (SINCE THE 6TH (NOT SPECIFIED COMPLETE DATE)
  3. TOTAL PARENTERAL NUTRITION [Concomitant]
     Active Substance: UNSPECIFIED INGREDIENT
     Dosage: UNK, (STARTED LAST NIGHT FROM REPORTING DATE)
  4. MORPHINE PCA [Concomitant]
     Dosage: 2 MG, PER HOUR (UNSURE EXACT DOSAGE)
  5. XALKORI [Suspect]
     Active Substance: CRIZOTINIB
     Indication: NON-SMALL CELL LUNG CANCER METASTATIC
     Dosage: 250 MG, 2X/DAY
     Dates: start: 20150113
  6. PROTONIX [Concomitant]
     Active Substance: PANTOPRAZOLE SODIUM
     Dosage: 40 MG, 2X/DAY
  7. REGLAN [Concomitant]
     Active Substance: METOCLOPRAMIDE HYDROCHLORIDE
     Dosage: 10 MG, Q6 AROUND THE CLOCK
     Dates: start: 20150105

REACTIONS (3)
  - Septic embolus [Unknown]
  - Respiratory failure [Unknown]
  - Peritonitis [Unknown]

NARRATIVE: CASE EVENT DATE: 20150114
